FAERS Safety Report 13698923 (Version 1)
Quarter: 2017Q2

REPORT INFORMATION
  Report Type: Spontaneous
  Country: OM (occurrence: OM)
  Receive Date: 20170628
  Receipt Date: 20170628
  Transmission Date: 20170830
  Serious: Yes (Death, Hospitalization, Other)
  Sender: FDA-Public Use
  Company Number: OM-IMPAX LABORATORIES, INC-2017-IPXL-01842

PATIENT
  Age: 38 Year
  Sex: Female

DRUGS (18)
  1. DIVALPROEX SODIUM ER [Suspect]
     Active Substance: DIVALPROEX SODIUM
     Indication: STATUS EPILEPTICUS
     Dosage: UNK
     Route: 065
  2. MIDAZOLAM [Suspect]
     Active Substance: MIDAZOLAM HYDROCHLORIDE
     Indication: STATUS EPILEPTICUS
  3. KETAMINE [Suspect]
     Active Substance: KETAMINE
     Indication: ANAESTHESIA
     Dosage: UNK
     Route: 042
  4. PHENOBARBITAL. [Suspect]
     Active Substance: PHENOBARBITAL
     Indication: STATUS EPILEPTICUS
     Dosage: UNK
     Route: 065
  5. LACOSAMIDE. [Suspect]
     Active Substance: LACOSAMIDE
     Indication: STATUS EPILEPTICUS
     Dosage: UNK
     Route: 065
  6. IMMUNOGLOBULIN HUMAN NORMAL [Suspect]
     Active Substance: HUMAN IMMUNOGLOBULIN G
     Indication: STATUS EPILEPTICUS
     Dosage: UNK
     Route: 042
  7. LAMOTRIGINE ODT [Suspect]
     Active Substance: LAMOTRIGINE
     Indication: STATUS EPILEPTICUS
     Dosage: UNK
     Route: 065
  8. MIDAZOLAM [Suspect]
     Active Substance: MIDAZOLAM HYDROCHLORIDE
     Indication: ANAESTHESIA
     Dosage: UNK
     Route: 042
  9. PROPOFOL. [Suspect]
     Active Substance: PROPOFOL
     Indication: ANAESTHESIA
     Dosage: UNK
     Route: 042
  10. PROPOFOL. [Suspect]
     Active Substance: PROPOFOL
     Indication: STATUS EPILEPTICUS
  11. METHYLPREDNISOLONE. [Suspect]
     Active Substance: METHYLPREDNISOLONE
     Indication: STATUS EPILEPTICUS
     Dosage: 1 G, UNK
     Route: 042
  12. PHENYTOIN. [Suspect]
     Active Substance: PHENYTOIN
     Indication: STATUS EPILEPTICUS
     Dosage: UNK
     Route: 065
  13. LEVETIRACETAM. [Suspect]
     Active Substance: LEVETIRACETAM
     Indication: STATUS EPILEPTICUS
     Dosage: UNK
     Route: 065
  14. THIOPENTONE [Suspect]
     Active Substance: THIOPENTAL SODIUM
     Indication: ANAESTHESIA
     Dosage: UNK
     Route: 042
  15. CLOBAZAM [Suspect]
     Active Substance: CLOBAZAM
     Indication: STATUS EPILEPTICUS
     Dosage: UNK
     Route: 065
  16. ACYCLOVIR. [Suspect]
     Active Substance: ACYCLOVIR
     Indication: EVIDENCE BASED TREATMENT
     Dosage: UNK
     Route: 042
  17. KETAMINE [Suspect]
     Active Substance: KETAMINE
     Indication: STATUS EPILEPTICUS
  18. THIOPENTONE [Suspect]
     Active Substance: THIOPENTAL SODIUM
     Indication: STATUS EPILEPTICUS

REACTIONS (3)
  - Multiple organ dysfunction syndrome [Fatal]
  - Pseudomonal sepsis [Fatal]
  - Drug effect incomplete [Unknown]
